FAERS Safety Report 5416372-5 (Version None)
Quarter: 2007Q3

REPORT INFORMATION
  Report Type: 
  Country: None (occurrence: None)
  Receive Date: 20070718
  Receipt Date: 20060803
  Transmission Date: 20080115
  Serious: Yes (Hospitalization)
  Sender: FDA-Public Use
  Company Number: 2006048941

PATIENT
  Age: 62 Year
  Sex: Female
  Weight: 78.4723 kg

DRUGS (1)
  1. CELEBREX [Suspect]
     Indication: ARTHRITIS
     Dosage: (200 MG, 1 - 2 PER DAY)
     Dates: start: 20000824

REACTIONS (1)
  - PULMONARY EMBOLISM [None]
